FAERS Safety Report 6878441-2 (Version None)
Quarter: 2010Q3

REPORT INFORMATION
  Report Type: 
  Country: None (occurrence: None)
  Receive Date: 20100728
  Receipt Date: 20100715
  Transmission Date: 20110219
  Serious: Yes (Death, Hospitalization)
  Sender: FDA-Public Use
  Company Number: US-ALEXION-A201000834

PATIENT
  Sex: Female

DRUGS (5)
  1. SOLIRIS [Suspect]
     Indication: PAROXYSMAL NOCTURNAL HAEMOGLOBINURIA
     Dosage: 600 MG, QW
     Route: 042
     Dates: start: 20100308, end: 20100329
  2. SOLIRIS [Suspect]
     Dosage: 900 MG, Q2W
     Route: 042
     Dates: start: 20100405
  3. CYCLOSPORINE [Suspect]
     Indication: APLASTIC ANAEMIA
     Dosage: UNK
     Route: 048
     Dates: end: 20100712
  4. PREDNISONE [Concomitant]
     Route: 048
  5. POTASSIUM [Concomitant]
     Dosage: UNK
     Dates: end: 20100712

REACTIONS (15)
  - APLASTIC ANAEMIA [None]
  - ARTHRALGIA [None]
  - CONDITION AGGRAVATED [None]
  - ELECTROLYTE IMBALANCE [None]
  - FEBRILE NEUTROPENIA [None]
  - HYPOPHAGIA [None]
  - NEUTROPENIA [None]
  - PAIN IN EXTREMITY [None]
  - PANCYTOPENIA [None]
  - PAROXYSMAL NOCTURNAL HAEMOGLOBINURIA [None]
  - RENAL FAILURE ACUTE [None]
  - SEPSIS [None]
  - THERAPEUTIC AGENT TOXICITY [None]
  - TYPE 2 DIABETES MELLITUS [None]
  - WHEELCHAIR USER [None]
